FAERS Safety Report 23601660 (Version 1)
Quarter: 2024Q1

REPORT INFORMATION
  Report Type: Spontaneous
  Country: US (occurrence: US)
  Receive Date: 20240306
  Receipt Date: 20240306
  Transmission Date: 20240410
  Serious: No
  Sender: FDA-Public Use
  Company Number: US-ABBVIE-5665372

PATIENT
  Sex: Female
  Weight: 63 kg

DRUGS (1)
  1. HUMIRA [Suspect]
     Active Substance: ADALIMUMAB
     Indication: Crohn^s disease
     Dosage: 2 TO 3 WEEKS ?FORM STRENGTH: 40 MG
     Route: 058
     Dates: start: 202204, end: 20240216

REACTIONS (1)
  - Polyp [Not Recovered/Not Resolved]
